FAERS Safety Report 4764867-X (Version None)
Quarter: 2005Q3

REPORT INFORMATION
  Report Type: 
  Country: None (occurrence: None)
  Receive Date: 20050909
  Receipt Date: 20050831
  Transmission Date: 20060218
  Serious: Yes (Other)
  Sender: FDA-Public Use
  Company Number: JP-NOVOPROD-246645

PATIENT
  Age: 53 Year
  Sex: Male
  Weight: 49 kg

DRUGS (8)
  1. NOVORAPID CHU FLEXPEN [Suspect]
     Indication: DIABETES MELLITUS
     Route: 058
  2. GLYBURIDE [Concomitant]
  3. SIGMART [Concomitant]
  4. PANTOSIN [Concomitant]
  5. PANALDINE [Concomitant]
  6. AMANTADINE HCL [Concomitant]
  7. ACTOS [Concomitant]
  8. BASEN [Concomitant]

REACTIONS (5)
  - ALANINE AMINOTRANSFERASE INCREASED [None]
  - ASPARTATE AMINOTRANSFERASE INCREASED [None]
  - DECREASED APPETITE [None]
  - HEPATIC FUNCTION ABNORMAL [None]
  - MALAISE [None]
